FAERS Safety Report 6190604-0 (Version None)
Quarter: 2009Q2

REPORT INFORMATION
  Report Type: 
  Country: None (occurrence: None)
  Receive Date: 20090514
  Receipt Date: 20090324
  Transmission Date: 20091009
  Serious: Yes (Death, Hospitalization, Other)
  Sender: FDA-Public Use
  Company Number: US-BRISTOL-MYERS SQUIBB COMPANY-14533996

PATIENT
  Age: 66 Year
  Sex: Female
  Weight: 60 kg

DRUGS (9)
  1. IXEMPRA KIT [Suspect]
     Indication: BREAST CANCER METASTATIC
     Route: 042
     Dates: start: 20090218, end: 20090218
  2. DECADRON [Concomitant]
     Indication: PREMEDICATION
  3. BENADRYL [Concomitant]
     Indication: PREMEDICATION
  4. ZOFRAN [Concomitant]
     Indication: PREMEDICATION
  5. LIPITOR [Concomitant]
  6. PREVACID [Concomitant]
  7. ASCORBIC ACID [Concomitant]
  8. FISH OIL [Concomitant]
  9. IRON [Concomitant]

REACTIONS (8)
  - ABDOMINAL PAIN [None]
  - DIARRHOEA [None]
  - MELAENA [None]
  - NAUSEA [None]
  - PANCYTOPENIA [None]
  - SEPSIS [None]
  - STOMATITIS [None]
  - VOMITING [None]
